FAERS Safety Report 9579120 (Version 1)
Quarter: 2013Q4

REPORT INFORMATION
  Report Type: Spontaneous
  Country: US (occurrence: US)
  Receive Date: 20131001
  Receipt Date: 20131001
  Transmission Date: 20140711
  Serious: No
  Sender: FDA-Public Use
  Company Number: US-AMGEN-USASP2013016272

PATIENT
  Age: 60 Year
  Sex: Female
  Weight: 72.56 kg

DRUGS (12)
  1. ENBREL [Suspect]
     Indication: RHEUMATOID ARTHRITIS
     Dosage: 50 MG, QWK
     Route: 058
  2. AMLODIPINE [Concomitant]
     Dosage: 2.5 MG, UNK
  3. LITHIUM CARBON [Concomitant]
     Dosage: 150 MG, UNK
  4. LAMOTRIGINE [Concomitant]
     Dosage: 5 MG, UNK
  5. CLONAZEPAM [Concomitant]
     Dosage: 0.5 MG, UNK
  6. CITALOPRAM [Concomitant]
     Dosage: 10 MG, UNK
  7. PROPRANOLOL [Concomitant]
     Dosage: 20 MG, UNK
  8. SEROQUEL [Concomitant]
     Dosage: 100 MG, UNK
  9. MULTIVITAMINS, PLAIN [Concomitant]
     Dosage: UNK
  10. PERCOCET                           /00446701/ [Concomitant]
     Dosage: 7.5-325
  11. SUPER B COMPL [Concomitant]
     Dosage: UNK
  12. CALCIUM + VIT D [Concomitant]
     Dosage: UNK

REACTIONS (1)
  - Therapeutic response decreased [Unknown]
